FAERS Safety Report 18417513 (Version 2)
Quarter: 2021Q1

REPORT INFORMATION
  Report Type: Spontaneous
  Country: US (occurrence: US)
  Receive Date: 20201022
  Receipt Date: 20210122
  Transmission Date: 20210419
  Serious: No
  Sender: FDA-Public Use
  Company Number: 2020SGN02838

PATIENT
  Sex: Female

DRUGS (4)
  1. TUKYSA [Suspect]
     Active Substance: TUCATINIB
     Indication: BREAST CANCER FEMALE
     Dosage: UNK, BID
  2. TUKYSA [Suspect]
     Active Substance: TUCATINIB
     Dosage: UNK
  3. CAPECITABINE. [Suspect]
     Active Substance: CAPECITABINE
     Indication: BREAST CANCER FEMALE
  4. HERCEPTIN [Concomitant]
     Active Substance: TRASTUZUMAB

REACTIONS (24)
  - Blood urine present [Unknown]
  - Abnormal faeces [Unknown]
  - Adverse drug reaction [Unknown]
  - Laboratory test abnormal [Unknown]
  - Metastases to central nervous system [Unknown]
  - Gait disturbance [Unknown]
  - Headache [Unknown]
  - Palmar-plantar erythrodysaesthesia syndrome [Unknown]
  - Decreased appetite [Unknown]
  - Mastitis [Unknown]
  - Metastases to bone [Unknown]
  - Dry mouth [Unknown]
  - Renal function test abnormal [Unknown]
  - Aspartate aminotransferase increased [Unknown]
  - Renal impairment [Recovered/Resolved]
  - Pain [Unknown]
  - Alopecia [Unknown]
  - Alanine aminotransferase increased [Unknown]
  - Depression [Unknown]
  - Liver function test increased [Unknown]
  - Breast swelling [Unknown]
  - Unevaluable event [Unknown]
  - Diarrhoea [Unknown]
  - Nausea [Unknown]
